FAERS Safety Report 22228827 (Version 1)
Quarter: 2023Q2

REPORT INFORMATION
  Report Type: Report from Study
  Country: FR (occurrence: None)
  Receive Date: 20230419
  Receipt Date: 20230419
  Transmission Date: 20230722
  Serious: Yes (Disabling)
  Sender: FDA-Public Use
  Company Number: FR-Eisai Medical Research-EC-2023-138278

PATIENT
  Sex: Female

DRUGS (2)
  1. HALAVEN [Suspect]
     Active Substance: ERIBULIN MESYLATE
     Indication: Breast cancer metastatic
     Dosage: DOSE UNKNOWN
     Route: 042
  2. XELODA [Concomitant]
     Active Substance: CAPECITABINE
     Indication: Breast cancer metastatic
     Dosage: DOSE AND FREQUENCY UNKNOWN

REACTIONS (10)
  - Blood pressure decreased [Not Recovered/Not Resolved]
  - Nausea [Not Recovered/Not Resolved]
  - Fatigue [Not Recovered/Not Resolved]
  - Dizziness [Not Recovered/Not Resolved]
  - Gamma-glutamyltransferase increased [Unknown]
  - Dyspepsia [Unknown]
  - Decreased appetite [Unknown]
  - Paraesthesia [Not Recovered/Not Resolved]
  - Blood pressure increased [Unknown]
  - Somnolence [Unknown]

NARRATIVE: CASE EVENT DATE: 20210101
